FAERS Safety Report 10370529 (Version 1)
Quarter: 2014Q3

REPORT INFORMATION
  Report Type: Spontaneous
  Country: US (occurrence: None)
  Receive Date: 20140807
  Receipt Date: 20140807
  Transmission Date: 20150326
  Serious: No
  Sender: FDA-Public Use
  Company Number: None

PATIENT
  Age: 51 Year
  Sex: Female

DRUGS (1)
  1. TECFIDERA [Suspect]
     Active Substance: DIMETHYL FUMARATE
     Indication: MULTIPLE SCLEROSIS
     Dosage: 240 MG CAP BID PO
     Route: 048
     Dates: start: 20140624

REACTIONS (3)
  - Abdominal discomfort [None]
  - Diarrhoea [None]
  - Dysuria [None]

NARRATIVE: CASE EVENT DATE: 20140624
